FAERS Safety Report 6021400-2 (Version None)
Quarter: 2008Q4

REPORT INFORMATION
  Report Type: 
  Country: None (occurrence: None)
  Receive Date: 20081229
  Receipt Date: 20081216
  Transmission Date: 20090506
  Serious: Yes (Other)
  Sender: FDA-Public Use
  Company Number: B0551385A

PATIENT
  Age: 74 Year
  Sex: Male

DRUGS (6)
  1. SUMATRIPTAN [Suspect]
     Indication: HEADACHE
     Dosage: 3000MG MONTHLY
     Route: 048
  2. ANALGESIC [Concomitant]
     Route: 065
  3. ANTIRHEUMATIC MEDICATION [Concomitant]
     Route: 065
  4. ERGOTAMIN [Concomitant]
     Route: 065
  5. ZOLMITRIPTAN [Concomitant]
     Route: 065
  6. MIRTAZAPINE [Concomitant]
     Route: 065

REACTIONS (5)
  - ACCIDENTAL OVERDOSE [None]
  - DEPENDENCE [None]
  - HEADACHE [None]
  - IRRITABILITY [None]
  - NEUROMYOPATHY [None]
